FAERS Safety Report 7384353-0 (Version None)
Quarter: 2011Q1

REPORT INFORMATION
  Report Type: 
  Country: None (occurrence: None)
  Receive Date: 20110330
  Receipt Date: 20110318
  Transmission Date: 20110831
  Serious: Yes (Death)
  Sender: FDA-Public Use
  Company Number: DE-ACTELION-A-US2011-43980

PATIENT

DRUGS (9)
  1. DEXAMETHASONE [Concomitant]
  2. BUMETANIDE [Concomitant]
  3. RANITIDINE [Concomitant]
  4. LANSOPRAZOLE [Concomitant]
  5. ALLOPURINOL [Concomitant]
  6. AMOXICILLIN [Concomitant]
  7. VENTAVIS [Suspect]
     Indication: PULMONARY ARTERIAL HYPERTENSION
     Dosage: 100 UG, UNK
     Route: 042
     Dates: start: 20101224, end: 20110110
  8. PREDNISOLONE [Concomitant]
  9. TAMSULOSIN [Concomitant]

REACTIONS (2)
  - INTERSTITIAL LUNG DISEASE [None]
  - PULMONARY HYPERTENSION [None]
